FAERS Safety Report 10759844 (Version 1)
Quarter: 2015Q1

REPORT INFORMATION
  Report Type: Other
  Country: DE (occurrence: DE)
  Receive Date: 20150203
  Receipt Date: 20150203
  Transmission Date: 20150721
  Serious: Yes (Other)
  Sender: FDA-Public Use
  Company Number: DE-MYLANLABS-2015M1001975

PATIENT

DRUGS (2)
  1. FOLS?URE [Concomitant]
     Indication: PROPHYLAXIS OF NEURAL TUBE DEFECT
     Dosage: UNK
     Route: 048
     Dates: start: 20131119, end: 20131203
  2. CITALOPRAM [Suspect]
     Active Substance: CITALOPRAM HYDROBROMIDE
     Indication: DEPRESSION
     Dosage: 20 MG, BID (40 [MG/D ])
     Route: 048
     Dates: start: 20131019, end: 20140227

REACTIONS (7)
  - Abortion late [Recovered/Resolved]
  - Oligohydramnios [Recovered/Resolved]
  - Premature labour [Recovered/Resolved]
  - Haemorrhage in pregnancy [Recovered/Resolved]
  - Cervix haematoma uterine [Recovered/Resolved]
  - Exposure during pregnancy [Unknown]
  - Preterm premature rupture of membranes [Recovered/Resolved]
